FAERS Safety Report 7098603-1 (Version None)
Quarter: 2010Q4

REPORT INFORMATION
  Report Type: 
  Country: None (occurrence: None)
  Receive Date: 20101104
  Receipt Date: 20101019
  Transmission Date: 20110411
  Serious: Yes (Other)
  Sender: FDA-Public Use
  Company Number: FKO201000479

PATIENT
  Age: 18 Year
  Sex: Female

DRUGS (6)
  1. CISPLATIN [Suspect]
     Indication: NASOPHARYNGEAL CANCER
     Dosage: (100 MG/M2,ON DAY 1) ; (70 MG/M2)
  2. FLUOROURACIL [Suspect]
     Dosage: (1000 MG/M2,ON DAYS 1-5)
  3. LEUCOVORINE (CALCIUM FOLINATE) (CALCIUM FOLINATE) [Concomitant]
  4. DEXAMETHASONE [Concomitant]
  5. ONDANSETRON [Concomitant]
  6. APREPITANT (APREPITANT) (APREPITANT) [Concomitant]

REACTIONS (6)
  - EMBOLISM ARTERIAL [None]
  - INTERMITTENT CLAUDICATION [None]
  - MUCOSAL INFLAMMATION [None]
  - PAIN [None]
  - PAIN IN EXTREMITY [None]
  - PARAESTHESIA [None]
